FAERS Safety Report 7797077-2 (Version None)
Quarter: 2011Q4

REPORT INFORMATION
  Report Type: 
  Country: None (occurrence: None)
  Receive Date: 20111005
  Receipt Date: 20110928
  Transmission Date: 20120403
  Serious: Yes (Death, Other)
  Sender: FDA-Public Use
  Company Number: VE-GENZYME-CLOF-1001546

PATIENT
  Sex: Female
  Weight: 6.9 kg

DRUGS (5)
  1. CIPROFLOXACIN [Concomitant]
     Indication: PRODUCT USED FOR UNKNOWN INDICATION
     Dosage: 30 MG/KG, QDX5
     Route: 065
     Dates: start: 20100809, end: 20100813
  2. CLOLAR [Suspect]
     Indication: ACUTE LYMPHOCYTIC LEUKAEMIA
     Dosage: 52 MG/M2, QDX5
     Route: 042
     Dates: start: 20100809
  3. CLOLAR [Suspect]
     Indication: ACUTE LEUKAEMIA
  4. BACTRON [Concomitant]
     Indication: PRODUCT USED FOR UNKNOWN INDICATION
     Dosage: 30 MG/KG, QDX5
     Route: 065
     Dates: start: 20100809, end: 20100813
  5. FLUCONAZOLE [Concomitant]
     Indication: PRODUCT USED FOR UNKNOWN INDICATION
     Dosage: 10 MG/KG, QDX5
     Route: 065
     Dates: start: 20100809, end: 20100813

REACTIONS (5)
  - FEBRILE NEUTROPENIA [None]
  - ACUTE RESPIRATORY FAILURE [None]
  - PULMONARY SEPSIS [None]
  - HEPATOTOXICITY [None]
  - LOWER RESPIRATORY TRACT INFECTION [None]
